FAERS Safety Report 25465971 (Version 1)
Quarter: 2025Q2

REPORT INFORMATION
  Report Type: Spontaneous
  Country: IS (occurrence: IS)
  Receive Date: 20250623
  Receipt Date: 20250623
  Transmission Date: 20250717
  Serious: Yes (Hospitalization, Other)
  Sender: GLAXOSMITHKLINE
  Company Number: None

PATIENT
  Age: 73 Year
  Sex: Female
  Weight: 39 kg

DRUGS (2)
  1. LAMICTAL [Suspect]
     Active Substance: LAMOTRIGINE
     Indication: Epilepsy
     Route: 065
  2. LOSARTAN [Concomitant]
     Active Substance: LOSARTAN
     Indication: Epilepsy
     Route: 065

REACTIONS (4)
  - Seizure [Recovered/Resolved]
  - Head injury [Recovered/Resolved]
  - Diplegia [Recovered/Resolved]
  - Postictal state [Recovered/Resolved]

NARRATIVE: CASE EVENT DATE: 20230123
